FAERS Safety Report 17336064 (Version 1)
Quarter: 2020Q1

REPORT INFORMATION
  Report Type: Spontaneous
  Country: US (occurrence: US)
  Receive Date: 20200128
  Receipt Date: 20200128
  Transmission Date: 20200409
  Serious: Yes (Hospitalization)
  Sender: FDA-Public Use
  Company Number: US-PFIZER INC-2020035875

PATIENT
  Age: 95 Year
  Sex: Female
  Weight: 53.7 kg

DRUGS (1)
  1. RETACRIT [Suspect]
     Active Substance: EPOETIN ALFA-EPBX
     Indication: REFRACTORY CYTOPENIA WITH UNILINEAGE DYSPLASIA
     Dosage: 40000 IU, WEEKLY

REACTIONS (1)
  - Fall [Unknown]

NARRATIVE: CASE EVENT DATE: 2019
